FAERS Safety Report 5475078-7 (Version None)
Quarter: 2007Q4

REPORT INFORMATION
  Report Type: 
  Country: None (occurrence: None)
  Receive Date: 20071002
  Receipt Date: 20070921
  Transmission Date: 20080405
  Serious: Yes (Disabling)
  Sender: FDA-Public Use
  Company Number: FR-BOEHRINGER INGELHEIM PHARMACEUTICALS, INC.-2007-FF-00262FF

PATIENT
  Age: 71 Year
  Sex: Female

DRUGS (4)
  1. MICARDIS [Suspect]
     Route: 048
     Dates: start: 20060115
  2. SIMVASTATIN [Concomitant]
     Indication: HYPERCHOLESTEROLAEMIA
     Route: 048
     Dates: start: 20060115, end: 20061127
  3. EVISTA [Concomitant]
  4. LEVOTHYROX [Concomitant]

REACTIONS (1)
  - MUSCLE HAEMORRHAGE [None]
